FAERS Safety Report 15219742 (Version 1)
Quarter: 2018Q4

REPORT INFORMATION
  Report Type: Spontaneous
  Country: FR (occurrence: FR)
  Receive Date: 20180731
  Receipt Date: 20180731
  Transmission Date: 20190204
  Serious: Yes (Other)
  Sender: FDA-Public Use
  Company Number: FR-TEVA-2018-FR-932479

PATIENT
  Age: 86 Year
  Sex: Male

DRUGS (2)
  1. TN UNSPECIFIED [Concomitant]
     Active Substance: TROLNITRATE
     Indication: PROSTATIC DISORDER
     Route: 065
  2. AMIODARONE [Suspect]
     Active Substance: AMIODARONE
     Indication: PRODUCT USED FOR UNKNOWN INDICATION
     Route: 065

REACTIONS (2)
  - Thyroid disorder [Not Recovered/Not Resolved]
  - Bradycardia [Not Recovered/Not Resolved]
